FAERS Safety Report 7725994-8 (Version None)
Quarter: 2011Q3

REPORT INFORMATION
  Report Type: 
  Country: None (occurrence: None)
  Receive Date: 20110902
  Receipt Date: 20110824
  Transmission Date: 20111222
  Serious: Yes (Hospitalization, Other)
  Sender: FDA-Public Use
  Company Number: US-ROCHE-521378

PATIENT
  Sex: Female
  Weight: 54.4 kg

DRUGS (3)
  1. BREVOXYL [Concomitant]
     Dates: start: 19960221
  2. ACCUTANE [Suspect]
     Route: 048
     Dates: start: 19960221, end: 19960918
  3. MINOCIN [Concomitant]
     Dates: start: 19960221

REACTIONS (12)
  - HIATUS HERNIA [None]
  - PANIC ATTACK [None]
  - IRON DEFICIENCY ANAEMIA [None]
  - INFLAMMATORY BOWEL DISEASE [None]
  - COLITIS [None]
  - ANXIETY [None]
  - GASTROINTESTINAL DISORDER [None]
  - COLITIS ULCERATIVE [None]
  - CLOSTRIDIAL INFECTION [None]
  - GASTRITIS [None]
  - DEPRESSION [None]
  - LEUKOPENIA [None]
